FAERS Safety Report 14159627 (Version 3)
Quarter: 2019Q1

REPORT INFORMATION
  Report Type: Spontaneous
  Country: US (occurrence: US)
  Receive Date: 20171103
  Receipt Date: 20190102
  Transmission Date: 20190417
  Serious: Yes (Hospitalization)
  Sender: FDA-Public Use
  Company Number: US-ACTELION-A-NJ2017-161860

PATIENT
  Age: 56 Year
  Sex: Female
  Weight: 76.64 kg

DRUGS (30)
  1. TRACLEER [Suspect]
     Active Substance: BOSENTAN
     Indication: PULMONARY ARTERIAL HYPERTENSION
     Dosage: 125 MG, BID
     Route: 048
     Dates: start: 20150406
  2. WARFARIN [Concomitant]
     Active Substance: WARFARIN
  3. ACETIC ACID. [Concomitant]
     Active Substance: ACETIC ACID
  4. ATORVASTATIN [Concomitant]
     Active Substance: ATORVASTATIN
  5. RENACIDIN [Concomitant]
     Active Substance: CITRIC ACID MONOHYDRATE\GLUCONOLACTONE\MAGNESIUM CARBONATE
  6. LASIX [Suspect]
     Active Substance: FUROSEMIDE
     Indication: PRODUCT USED FOR UNKNOWN INDICATION
     Route: 065
  7. EZETIMIBE. [Concomitant]
     Active Substance: EZETIMIBE
  8. IPRATROPIUM BROMIDE AND ALBUTEROL SULFATE [Concomitant]
     Active Substance: ALBUTEROL SULFATE\IPRATROPIUM BROMIDE
  9. NOVOLOG [Concomitant]
     Active Substance: INSULIN ASPART
  10. TORSEMIDE. [Concomitant]
     Active Substance: TORSEMIDE
  11. AZELASTINE. [Concomitant]
     Active Substance: AZELASTINE HYDROCHLORIDE
  12. HYDROCHLOROTHIAZIDE. [Concomitant]
     Active Substance: HYDROCHLOROTHIAZIDE
  13. MONTELUKAST [Concomitant]
     Active Substance: MONTELUKAST SODIUM
  14. TRETINOIN. [Concomitant]
     Active Substance: TRETINOIN
  15. BACLOFEN. [Concomitant]
     Active Substance: BACLOFEN
  16. DEXAMETHASONE. [Concomitant]
     Active Substance: DEXAMETHASONE
  17. ELIQUIS [Concomitant]
     Active Substance: APIXABAN
  18. LANTUS [Concomitant]
     Active Substance: INSULIN GLARGINE
  19. LASTACAFT [Concomitant]
     Active Substance: ALCAFTADINE
  20. OXYCODONE AND ACETAMINOPHEN [Concomitant]
     Active Substance: ACETAMINOPHEN\OXYCODONE HYDROCHLORIDE
  21. SYMBICORT [Concomitant]
     Active Substance: BUDESONIDE\FORMOTEROL FUMARATE DIHYDRATE
  22. FLUTICASONE. [Concomitant]
     Active Substance: FLUTICASONE
  23. METRONIDAZOLE. [Concomitant]
     Active Substance: METRONIDAZOLE
  24. TRIAMCINOLONE ACETONIDE. [Concomitant]
     Active Substance: TRIAMCINOLONE ACETONIDE
  25. CLINDAMYCIN. [Concomitant]
     Active Substance: CLINDAMYCIN
  26. LYRICA [Concomitant]
     Active Substance: PREGABALIN
  27. ALBUTEROL SULFATE. [Concomitant]
     Active Substance: ALBUTEROL SULFATE
  28. DIAZEPAM. [Concomitant]
     Active Substance: DIAZEPAM
  29. POTASSIUM CITRATE. [Concomitant]
     Active Substance: POTASSIUM CITRATE
  30. VOLTAREN [Concomitant]
     Active Substance: DICLOFENAC SODIUM

REACTIONS (5)
  - Liver disorder [Unknown]
  - Urinary tract infection [Unknown]
  - Nephrolithiasis [Unknown]
  - Rash [Unknown]
  - Renal disorder [Unknown]

NARRATIVE: CASE EVENT DATE: 20180713
